FAERS Safety Report 5926987-3 (Version None)
Quarter: 2008Q4

REPORT INFORMATION
  Report Type: 
  Country: None (occurrence: None)
  Receive Date: 20081022
  Receipt Date: 20081015
  Transmission Date: 20090506
  Serious: Yes (Hospitalization)
  Sender: FDA-Public Use
  Company Number: US-ABBOTT-08P-163-0481883-00

PATIENT
  Sex: Male
  Weight: 86.26 kg

DRUGS (1)
  1. NIASPAN [Suspect]
     Indication: BLOOD CHOLESTEROL INCREASED
     Route: 048
     Dates: start: 20080911, end: 20080916

REACTIONS (9)
  - CHEST PAIN [None]
  - DYSPNOEA [None]
  - GROIN PAIN [None]
  - HYPERSENSITIVITY [None]
  - PAIN IN EXTREMITY [None]
  - PRURITUS [None]
  - PULMONARY EMBOLISM [None]
  - THROAT TIGHTNESS [None]
  - URTICARIA [None]
